FAERS Safety Report 17666825 (Version 1)
Quarter: 2020Q2

REPORT INFORMATION
  Report Type: Spontaneous
  Country: US (occurrence: US)
  Receive Date: 20200414
  Receipt Date: 20200414
  Transmission Date: 20200713
  Serious: No
  Sender: FDA-Public Use
  Company Number: US-JAZZ-2019-US-018371

PATIENT
  Sex: Female

DRUGS (4)
  1. XYREM [Concomitant]
     Active Substance: SODIUM OXYBATE
     Indication: CATAPLEXY
  2. SUNOSI [Suspect]
     Active Substance: SOLRIAMFETOL
     Indication: SOMNOLENCE
     Dosage: 150 MG, QD
     Route: 048
  3. SUNOSI [Suspect]
     Active Substance: SOLRIAMFETOL
     Indication: NARCOLEPSY
  4. XYREM [Concomitant]
     Active Substance: SODIUM OXYBATE
     Indication: NARCOLEPSY

REACTIONS (2)
  - Therapeutic response decreased [Unknown]
  - Drug dose titration not performed [Unknown]
